FAERS Safety Report 10350721 (Version 2)
Quarter: 2014Q3

REPORT INFORMATION
  Report Type: Spontaneous
  Country: US (occurrence: US)
  Receive Date: 20140730
  Receipt Date: 20140819
  Transmission Date: 20150326
  Serious: No
  Sender: FDA-Public Use
  Company Number: US-PFIZER INC-2014208622

PATIENT
  Age: 71 Year
  Sex: Male

DRUGS (2)
  1. SUTENT [Suspect]
     Active Substance: SUNITINIB MALATE
     Indication: ONCOLOGIC COMPLICATION
     Dosage: 50 MG, CYCLIC (1 CAP FOR 2 DAYS THEN SKIP 1 DAY FOR 28 DAYS)
     Route: 048
     Dates: start: 20140207
  2. SUTENT [Suspect]
     Active Substance: SUNITINIB MALATE
     Indication: RENAL CANCER
     Dosage: 50 MG, UNK (50 MG 2 (ILLEGIBLE WORD PROVIDED) OF 3 DAYS FOR 4 WEEKS THEN 2 WEEKS OFF)
     Route: 048
     Dates: start: 201304

REACTIONS (9)
  - Fatigue [Unknown]
  - Oropharyngeal pain [Unknown]
  - Weight decreased [Unknown]
  - Rash [Not Recovered/Not Resolved]
  - Diarrhoea [Not Recovered/Not Resolved]
  - Poor quality sleep [Unknown]
  - Decreased appetite [Not Recovered/Not Resolved]
  - Gingival bleeding [Unknown]
  - Oral pain [Unknown]

NARRATIVE: CASE EVENT DATE: 20140724
